FAERS Safety Report 24911334 (Version 3)
Quarter: 2025Q4

REPORT INFORMATION
  Report Type: Report from Study
  Country: CA (occurrence: CA)
  Receive Date: 20250131
  Receipt Date: 20251125
  Transmission Date: 20260117
  Serious: Yes (Other)
  Sender: CSL BEHRING
  Company Number: CA-BEH-2024176466

PATIENT
  Age: 70 Year
  Sex: Female
  Weight: 53.5 kg

DRUGS (2)
  1. HIZENTRA [Suspect]
     Active Substance: HUMAN IMMUNOGLOBULIN G
     Indication: Primary immunodeficiency syndrome
     Dosage: 9 G, QW
     Route: 058
     Dates: start: 20150101
  2. HIZENTRA [Suspect]
     Active Substance: HUMAN IMMUNOGLOBULIN G
     Dosage: UNK
     Route: 065

REACTIONS (13)
  - Loss of consciousness [Unknown]
  - Muscular weakness [Unknown]
  - Device infusion issue [Unknown]
  - Product physical issue [Unknown]
  - Arthritis [Unknown]
  - Illness [Unknown]
  - Cough [Unknown]
  - Hypersensitivity [Unknown]
  - Infusion related reaction [Unknown]
  - Incorrect drug administration rate [Unknown]
  - Device infusion issue [Unknown]
  - Incorrect drug administration rate [Unknown]
  - Incorrect drug administration rate [Unknown]
